FAERS Safety Report 9337272 (Version 2)
Quarter: 2013Q3

REPORT INFORMATION
  Report Type: Report from Study
  Country: US (occurrence: US)
  Receive Date: 20130607
  Receipt Date: 20130715
  Transmission Date: 20140515
  Serious: Yes (Hospitalization, Other)
  Sender: FDA-Public Use
  Company Number: US-PFIZER INC-2013169957

PATIENT
  Age: 41 Year
  Sex: Male

DRUGS (2)
  1. CARBOPLATIN [Suspect]
     Indication: ADENOID CYSTIC CARCINOMA
     Dosage: AUC OF 1.5, WEEKLY
     Route: 040
  2. PACLITAXEL [Suspect]
     Indication: ADENOID CYSTIC CARCINOMA
     Dosage: 45 MG/M2, WEEKLY
     Route: 040

REACTIONS (3)
  - Mucosal inflammation [Recovered/Resolved]
  - Dermatitis exfoliative [Recovered/Resolved]
  - Dysphagia [Recovered/Resolved]
